FAERS Safety Report 9130267 (Version 2)
Quarter: 2013Q2

REPORT INFORMATION
  Report Type: Report from Study
  Country: JP (occurrence: JP)
  Receive Date: 20130301
  Receipt Date: 20130617
  Transmission Date: 20140414
  Serious: Yes (Death, Life-Threatening, Hospitalization, Other)
  Sender: FDA-Public Use
  Company Number: JP-009507513-2012SP028261

PATIENT
  Age: 62 Year
  Sex: Male
  Weight: 65 kg

DRUGS (12)
  1. TEMOZOLOMIDE [Suspect]
     Indication: GLIOBLASTOMA MULTIFORME
     Dosage: 150 MG/M2, QD
     Route: 041
     Dates: start: 20120123, end: 20120123
  2. TEMODAL [Suspect]
     Indication: GLIOBLASTOMA MULTIFORME
     Dosage: UNK
     Route: 048
     Dates: start: 20100112, end: 20111220
  3. FERON [Concomitant]
     Dosage: UNK
     Route: 041
     Dates: start: 20120123, end: 20120123
  4. FRUCTOSE (+) GLYCERIN [Concomitant]
     Dosage: UNK
     Route: 041
     Dates: start: 20120110, end: 20120206
  5. NOVOLIN R [Concomitant]
     Dosage: UNK
     Route: 058
     Dates: start: 20091221, end: 20120305
  6. VOGLIBOSE [Concomitant]
     Dosage: UNK
     Route: 048
     Dates: start: 20091221, end: 20120124
  7. HYSERENIN [Concomitant]
     Dosage: UNK
     Route: 048
     Dates: start: 20091223, end: 20120510
  8. DEXAMETHASONE [Concomitant]
     Dosage: UNK
     Route: 048
     Dates: start: 20120117, end: 20120510
  9. TAKEPRON [Concomitant]
     Indication: PROPHYLAXIS
     Dosage: UNK
     Route: 048
     Dates: start: 20120117, end: 20120510
  10. CEPHADOL [Concomitant]
     Dosage: UNK
     Route: 048
     Dates: start: 20091221, end: 20120124
  11. MEBENDAZOLE [Concomitant]
     Dosage: UNK
     Route: 048
     Dates: start: 20120120, end: 20120509
  12. NASEA [Concomitant]
     Indication: PROPHYLAXIS
     Dosage: UNK
     Route: 048
     Dates: start: 20120123, end: 20120123

REACTIONS (9)
  - Disease progression [Fatal]
  - Convulsion [Recovering/Resolving]
  - C-reactive protein increased [Recovered/Resolved]
  - Pneumonia aspiration [Recovering/Resolving]
  - Vomiting [Recovering/Resolving]
  - Gamma-glutamyltransferase increased [Not Recovered/Not Resolved]
  - Platelet count decreased [Recovered/Resolved]
  - Convulsion [Recovering/Resolving]
  - Anaemia [Not Recovered/Not Resolved]
